FAERS Safety Report 8390333 (Version 2)
Quarter: 2018Q4

REPORT INFORMATION
  Report Type: Spontaneous
  Country: IT (occurrence: IT)
  Receive Date: 20120203
  Receipt Date: 20181203
  Transmission Date: 20190205
  Serious: Yes (Other)
  Sender: FDA-Public Use
  Company Number: IT-PFIZER INC-2012028569

PATIENT
  Sex: Male

DRUGS (2)
  1. GEMZAR [Suspect]
     Active Substance: GEMCITABINE HYDROCHLORIDE
     Indication: SMALL CELL LUNG CANCER
     Dosage: 1888 MG, CYCLIC
     Route: 042
     Dates: start: 20111212, end: 20120127
  2. CARBOPLATIN. [Suspect]
     Active Substance: CARBOPLATIN
     Indication: SMALL CELL LUNG CANCER
     Dosage: 80 MG, CYCLIC
     Dates: start: 20111212, end: 20120127

REACTIONS (2)
  - Epistaxis [Unknown]
  - Haemoptysis [Unknown]

NARRATIVE: CASE EVENT DATE: 20120101
